FAERS Safety Report 7844456-0 (Version None)
Quarter: 2011Q4

REPORT INFORMATION
  Report Type: 
  Country: None (occurrence: None)
  Receive Date: 20111025
  Receipt Date: 20111014
  Transmission Date: 20120403
  Serious: Yes (Hospitalization)
  Sender: FDA-Public Use
  Company Number: US-MERCK-1104USA03724

PATIENT
  Age: 60 Year
  Sex: Female
  Weight: 75 kg

DRUGS (9)
  1. FOSAMAX [Suspect]
     Indication: OSTEOPOROSIS
     Route: 048
     Dates: start: 19980101, end: 20060901
  2. MAGNESIUM (UNSPECIFIED) [Concomitant]
     Route: 065
     Dates: start: 19900101
  3. VITAMINS (UNSPECIFIED) [Concomitant]
     Route: 065
     Dates: start: 19900101
  4. CALCIUM (UNSPECIFIED) [Concomitant]
     Route: 065
     Dates: start: 19900101
  5. FOSAMAX [Suspect]
     Indication: MUSCLE SPASMS
     Route: 048
     Dates: start: 19980101, end: 20060901
  6. [THERAPY UNSPECIFIED] [Concomitant]
     Indication: RHEUMATOID ARTHRITIS
     Route: 065
  7. RECLAST [Concomitant]
     Indication: OSTEOPOROSIS
     Route: 051
     Dates: start: 20080201
  8. IRON (UNSPECIFIED) [Concomitant]
     Route: 065
     Dates: start: 19900101
  9. POTASSIUM (UNSPECIFIED) [Concomitant]
     Route: 065
     Dates: start: 19900101

REACTIONS (12)
  - SECONDARY HYPOTHYROIDISM [None]
  - ARTHROPATHY [None]
  - FEMUR FRACTURE [None]
  - INTERVERTEBRAL DISC DEGENERATION [None]
  - URINARY TRACT INFECTION [None]
  - MYOPATHY [None]
  - RHEUMATOID ARTHRITIS [None]
  - SCIATICA [None]
  - ANAEMIA POSTOPERATIVE [None]
  - ATELECTASIS [None]
  - SPINAL COLUMN STENOSIS [None]
  - HYPERTENSION [None]
